FAERS Safety Report 7006569-5 (Version None)
Quarter: 2010Q3

REPORT INFORMATION
  Report Type: 
  Country: None (occurrence: None)
  Receive Date: 20100921
  Receipt Date: 20100921
  Transmission Date: 20110219
  Serious: Yes (Life-Threatening, Disabling)
  Sender: FDA-Public Use
  Company Number: None

PATIENT
  Age: 31 Year
  Sex: Female
  Weight: 99.7913 kg

DRUGS (2)
  1. WELLBUTRIN XL [Suspect]
     Indication: ALLERGY TEST
     Dosage: 1 DAILY PO
     Route: 048
     Dates: start: 20100820, end: 20100913
  2. WELLBUTRIN XL [Suspect]
     Indication: MAJOR DEPRESSION
     Dosage: 1 DAILY PO
     Route: 048
     Dates: start: 20100820, end: 20100913

REACTIONS (1)
  - DRUG HYPERSENSITIVITY [None]
